FAERS Safety Report 7369817-8 (Version None)
Quarter: 2011Q1

REPORT INFORMATION
  Report Type: 
  Country: None (occurrence: None)
  Receive Date: 20110323
  Receipt Date: 20110314
  Transmission Date: 20110831
  Serious: Yes (Hospitalization)
  Sender: FDA-Public Use
  Company Number: US-ASTRAZENECA-2011SE14069

PATIENT
  Age: 50 Year
  Sex: Female
  Weight: 79.4 kg

DRUGS (3)
  1. BUPROPION [Concomitant]
  2. SEROQUEL [Suspect]
     Indication: BIPOLAR DISORDER
     Route: 048
     Dates: end: 20110224
  3. BUPROPION [Concomitant]
     Indication: ANXIETY

REACTIONS (1)
  - DRUG DOSE OMISSION [None]
